FAERS Safety Report 7050490-3 (Version None)
Quarter: 2010Q4

REPORT INFORMATION
  Report Type: 
  Country: None (occurrence: None)
  Receive Date: 20101018
  Receipt Date: 20101005
  Transmission Date: 20110411
  Serious: No
  Sender: FDA-Public Use
  Company Number: US-ELI_LILLY_AND_COMPANY-US201008003127

PATIENT
  Age: 45 Year
  Sex: Male

DRUGS (9)
  1. CYMBALTA [Suspect]
     Indication: DEPRESSION
     Dosage: 60 MG, DAILY (1/D)
  2. LACTULOSE [Concomitant]
  3. JANUVIA [Concomitant]
  4. BUTALBITAL COMPOUND [Concomitant]
  5. METFORMIN HCL [Concomitant]
  6. PRAVASTATIN [Concomitant]
  7. VIREAD [Concomitant]
  8. ACIPHEX [Concomitant]
  9. NADOLOL [Concomitant]

REACTIONS (1)
  - NO ADVERSE EVENT [None]
